FAERS Safety Report 18962490 (Version 1)
Quarter: 2021Q1

REPORT INFORMATION
  Report Type: Spontaneous
  Country: FR (occurrence: FR)
  Receive Date: 20210303
  Receipt Date: 20210303
  Transmission Date: 20210420
  Serious: Yes (Death, Other)
  Sender: FDA-Public Use
  Company Number: FR-AMGEN-FRASP2021030327

PATIENT
  Sex: Female

DRUGS (3)
  1. NEUPOGEN [Suspect]
     Active Substance: FILGRASTIM
     Indication: PROPHYLAXIS
     Dosage: UNK
     Route: 065
  2. NEULASTA [Suspect]
     Active Substance: PEGFILGRASTIM
     Indication: PROPHYLAXIS
     Dosage: UNK
     Route: 065
  3. LENOGRASTIM [Concomitant]
     Active Substance: LENOGRASTIM
     Dosage: UNK
     Route: 065

REACTIONS (9)
  - Myeloproliferative neoplasm [Unknown]
  - Plasma cell myeloma [Unknown]
  - Myelodysplastic syndrome [Unknown]
  - Acute myeloid leukaemia [Unknown]
  - Lymphocytic lymphoma [Unknown]
  - Acute lymphocytic leukaemia [Unknown]
  - Hodgkin^s disease [Unknown]
  - Death [Fatal]
  - Non-Hodgkin^s lymphoma [Unknown]
